FAERS Safety Report 12541665 (Version 4)
Quarter: 2016Q4

REPORT INFORMATION
  Report Type: Spontaneous
  Country: JP (occurrence: JP)
  Receive Date: 20160708
  Receipt Date: 20161024
  Transmission Date: 20170207
  Serious: Yes (Other)
  Sender: FDA-Public Use
  Company Number: JP-UCBSA-2016025286

PATIENT
  Age: 87 Year
  Sex: Male

DRUGS (3)
  1. LEVOFLOXACIN. [Concomitant]
     Active Substance: LEVOFLOXACIN
     Indication: PRODUCT USED FOR UNKNOWN INDICATION
     Dosage: 250 MG DAILY
     Route: 048
     Dates: start: 20160520, end: 20160620
  2. E KEPPRA [Suspect]
     Active Substance: LEVETIRACETAM
     Indication: EPILEPSY
     Dosage: 250 MG, 2X/DAY (BID)
     Route: 048
     Dates: start: 20160611, end: 20160622
  3. FLAGYL [Suspect]
     Active Substance: METRONIDAZOLE\METRONIDAZOLE HYDROCHLORIDE
     Indication: PRODUCT USED FOR UNKNOWN INDICATION
     Dosage: 1500MG, DAILY
     Route: 048
     Dates: start: 20160523, end: 20160620

REACTIONS (4)
  - Nausea [Recovered/Resolved]
  - Altered state of consciousness [Recovered/Resolved]
  - Vomiting [Recovered/Resolved]
  - Toxic encephalopathy [Unknown]

NARRATIVE: CASE EVENT DATE: 201606
